FAERS Safety Report 6417399-7 (Version None)
Quarter: 2009Q4

REPORT INFORMATION
  Report Type: 
  Country: None (occurrence: None)
  Receive Date: 20091027
  Receipt Date: 20091027
  Transmission Date: 20100525
  Serious: Yes (Hospitalization)
  Sender: FDA-Public Use
  Company Number: None

PATIENT
  Age: 79 Year
  Sex: Female

DRUGS (14)
  1. IBUPROFEN TABLETS [Suspect]
     Indication: ARTHRITIS
     Dosage: 600MG TID PO
     Route: 048
  2. DICLOFENAC 75MG [Suspect]
     Indication: ARTHRITIS
     Dosage: 75MG BID PRN PO
     Route: 048
  3. ASPIRIN [Concomitant]
  4. MULTIVIT [Concomitant]
  5. FOSAMAX [Concomitant]
  6. PROTONIX [Concomitant]
  7. VERAPAMIL [Concomitant]
  8. CHERATUSSIN AC [Concomitant]
  9. ALLEGRA [Concomitant]
  10. MECLIZINE [Concomitant]
  11. VIT D [Concomitant]
  12. DICYCLOMINE [Concomitant]
  13. LASIX [Concomitant]
  14. FIBERCON [Concomitant]

REACTIONS (4)
  - CHEST PAIN [None]
  - GASTRITIS [None]
  - HYPOAESTHESIA [None]
  - OESOPHAGITIS [None]
